FAERS Safety Report 6844063-2 (Version None)
Quarter: 2010Q3

REPORT INFORMATION
  Report Type: 
  Country: None (occurrence: None)
  Receive Date: 20100712
  Receipt Date: 20100701
  Transmission Date: 20110219
  Serious: Yes (Death, Hospitalization, Other)
  Sender: FDA-Public Use
  Company Number: 8020244

PATIENT
  Sex: Female
  Weight: 69.3 kg

DRUGS (9)
  1. CERTOLIZUMAB PEGOL (CERTOLIZUMAB PEGOL [Suspect]
     Indication: CROHN'S DISEASE
     Dosage: SEE IMAGE
     Route: 058
     Dates: start: 20040604, end: 20040702
  2. CERTOLIZUMAB PEGOL (CERTOLIZUMAB PEGOL [Suspect]
     Indication: CROHN'S DISEASE
     Dosage: SEE IMAGE
     Route: 058
     Dates: start: 20040730, end: 20040827
  3. CERTOLIZUMAB PEGOL (CERTOLIZUMAB PEGOL [Suspect]
     Indication: CROHN'S DISEASE
     Dosage: SEE IMAGE
     Route: 058
     Dates: start: 20040924, end: 20041022
  4. CERTOLIZUMAB PEGOL (CERTOLIZUMAB PEGOL [Suspect]
     Indication: CROHN'S DISEASE
     Dosage: SEE IMAGE
     Route: 058
     Dates: start: 20041119, end: 20061120
  5. ASACOL [Concomitant]
  6. PARACETAMOL [Concomitant]
  7. AROPAX [Concomitant]
  8. NEO-CYTAMEN [Concomitant]
  9. LEMNIS HC [Concomitant]

REACTIONS (23)
  - ADENOCARCINOMA [None]
  - BLOOD FOLLICLE STIMULATING HORMONE INCREASED [None]
  - BREAST ABSCESS [None]
  - BREAST CANCER FEMALE [None]
  - BREAST CANCER METASTATIC [None]
  - CULTURE STOOL POSITIVE [None]
  - DISEASE RECURRENCE [None]
  - ECZEMA [None]
  - HYDRONEPHROSIS [None]
  - INFECTION [None]
  - MALIGNANT NEOPLASM PROGRESSION [None]
  - MASTITIS [None]
  - METASTASES TO BONE [None]
  - METASTASES TO CENTRAL NERVOUS SYSTEM [None]
  - METASTASES TO LUNG [None]
  - OESTROGEN RECEPTOR ASSAY POSITIVE [None]
  - PERICARDIAL EFFUSION [None]
  - PLEURAL EFFUSION [None]
  - PROGESTERONE RECEPTOR ASSAY POSITIVE [None]
  - RENAL FAILURE ACUTE [None]
  - SEROMA [None]
  - URINARY TRACT INFECTION STAPHYLOCOCCAL [None]
  - WOUND ABSCESS [None]
